FAERS Safety Report 18351299 (Version 1)
Quarter: 2020Q4

REPORT INFORMATION
  Report Type: Spontaneous
  Country: FR (occurrence: FR)
  Receive Date: 20201006
  Receipt Date: 20201006
  Transmission Date: 20210114
  Serious: Yes (Life-Threatening, Hospitalization)
  Sender: FDA-Public Use
  Company Number: FR-INDIVIOR US-INDV-126615-2020

PATIENT
  Age: 13 Year
  Sex: Female
  Weight: 47.7 kg

DRUGS (4)
  1. APRANAX [Suspect]
     Active Substance: NAPROXEN
     Indication: TOXICITY TO VARIOUS AGENTS
     Dosage: 2 DOSAGE FORM, TOTAL
     Route: 048
     Dates: start: 20181013, end: 20181013
  2. PARACETAMOL [Suspect]
     Active Substance: ACETAMINOPHEN
     Indication: TOXICITY TO VARIOUS AGENTS
     Dosage: 8 GRAM, TOTAL
     Route: 048
     Dates: start: 20181013, end: 20181013
  3. SUBUTEX [Suspect]
     Active Substance: BUPRENORPHINE HYDROCHLORIDE
     Indication: TOXICITY TO VARIOUS AGENTS
     Dosage: 4 MILLIGRAM, TOTAL
     Route: 060
     Dates: start: 20181013, end: 20181013
  4. SERESTA [Suspect]
     Active Substance: OXAZEPAM
     Indication: TOXICITY TO VARIOUS AGENTS
     Dosage: 45 DOSAGE FORM, TOTAL
     Route: 048
     Dates: start: 20181013, end: 20181013

REACTIONS (4)
  - Depressed level of consciousness [Recovered/Resolved]
  - Product administered to patient of inappropriate age [Recovered/Resolved]
  - Metabolic acidosis [Recovered/Resolved]
  - Somnolence [Recovered/Resolved]

NARRATIVE: CASE EVENT DATE: 20181013
